FAERS Safety Report 15866068 (Version 1)
Quarter: 2019Q1

REPORT INFORMATION
  Report Type: Report from Study
  Country: None (occurrence: TR)
  Receive Date: 20190125
  Receipt Date: 20190125
  Transmission Date: 20190417
  Serious: Yes (Hospitalization, Other)
  Sender: FDA-Public Use
  Company Number: TR-ABBVIE-19S-161-2633703-00

PATIENT
  Age: 65 Year
  Sex: Male

DRUGS (11)
  1. DUODOPA [Suspect]
     Active Substance: CARBIDOPA\LEVODOPA
     Indication: PARKINSON^S DISEASE
     Dosage: MD(ML): 4.30 CD (ML): 3.40 ED (ML): 1.00
     Route: 050
     Dates: start: 20180529
  2. MOTILIUM [Concomitant]
     Active Substance: DOMPERIDONE
     Indication: PROPHYLAXIS
     Route: 048
     Dates: start: 201805
  3. ALYSE [Concomitant]
     Indication: PARKINSON^S DISEASE
     Route: 048
  4. LANTUS SOLOSTAR [Concomitant]
     Active Substance: INSULIN GLARGINE
     Indication: DIABETES MELLITUS
     Dosage: ALTERED DOSES DEPENDING ON THE CALCULATED BLOOD SUGAR LEVELS.
     Route: 058
  5. DIKLORON AMPOULE [Concomitant]
     Indication: ANALGESIC THERAPY
     Route: 030
     Dates: start: 201811
  6. APIDRA SOLOSTAR [Concomitant]
     Active Substance: INSULIN GLULISINE
     Indication: DIABETES MELLITUS
     Dosage: ALTERED DOSES DEPENDING ON THE CALCULATED BLOOD SUGAR LEVELS
     Route: 058
  7. ECOPRIN [Concomitant]
     Indication: PROPHYLAXIS
     Route: 048
     Dates: start: 201811
  8. TIOPATI [Concomitant]
     Indication: PARKINSON^S DISEASE
     Route: 048
  9. CONTRAMAL AMPOULE [Concomitant]
     Indication: ANALGESIC THERAPY
     Route: 030
     Dates: start: 201811
  10. JANUMET [Concomitant]
     Active Substance: METFORMIN HYDROCHLORIDE\SITAGLIPTIN PHOSPHATE
     Indication: DIABETES MELLITUS
     Dosage: METFORMIN/SITAGLIPTIN: 50/1000 MG
     Route: 048
     Dates: start: 20180907
  11. REQUIP [Concomitant]
     Active Substance: ROPINIROLE HYDROCHLORIDE
     Indication: PARKINSON^S DISEASE
     Route: 048
     Dates: start: 20180906

REACTIONS (5)
  - Fall [Recovered/Resolved]
  - Bradykinesia [Not Recovered/Not Resolved]
  - Pelvic fracture [Recovered/Resolved]
  - Gait disturbance [Not Recovered/Not Resolved]
  - Hypoglycaemia [Recovered/Resolved]

NARRATIVE: CASE EVENT DATE: 201811
